FAERS Safety Report 10790378 (Version 1)
Quarter: 2015Q1

REPORT INFORMATION
  Report Type: Spontaneous
  Country: CA (occurrence: CA)
  Receive Date: 20150212
  Receipt Date: 20150212
  Transmission Date: 20150721
  Serious: Yes (Death, Other)
  Sender: FDA-Public Use
  Company Number: CA-ROCHE-1536642

PATIENT
  Age: 3 Year
  Sex: Female

DRUGS (1)
  1. CEFTRIAXONE. [Suspect]
     Active Substance: CEFTRIAXONE
     Indication: SEPSIS
     Route: 065

REACTIONS (4)
  - Disseminated intravascular coagulation [Fatal]
  - Oliguria [Fatal]
  - Autoimmune haemolytic anaemia [Fatal]
  - Circulatory collapse [Fatal]
